FAERS Safety Report 8986704 (Version 1)
Quarter: 2012Q4

REPORT INFORMATION
  Report Type: 
  Country: ES (occurrence: ES)
  Receive Date: 20121227
  Receipt Date: 20121227
  Transmission Date: 20130627
  Serious: Yes (Hospitalization)
  Sender: FDA-Public Use
  Company Number: ES-RANBAXY-2012RR-63461

PATIENT
  Age: 41 Year
  Sex: Female

DRUGS (4)
  1. PAROXETINE [Suspect]
     Dosage: 400 mg, UNK
     Route: 065
  2. LORAZEPAM [Suspect]
     Dosage: 40 mg, UNK
     Route: 065
  3. LORAZEPAM [Suspect]
     Dosage: 36 mg, UNK
     Route: 065
  4. VENLAFAXINE [Suspect]
     Dosage: 4500 mg, UNK
     Route: 065

REACTIONS (3)
  - Hypoglycaemia [Recovered/Resolved]
  - Hypotonia [Unknown]
  - Overdose [Unknown]
